FAERS Safety Report 8737295 (Version 2)
Quarter: 2012Q4

REPORT INFORMATION
  Report Type: 
  Country: US (occurrence: US)
  Receive Date: 20120822
  Receipt Date: 20121008
  Transmission Date: 20130627
  Serious: No
  Sender: FDA-Public Use
  Company Number: US-ASTRAZENECA-2012SE57422

PATIENT
  Age: 70 Year
  Sex: Female
  Weight: 80.7 kg

DRUGS (9)
  1. SYMBICORT [Suspect]
     Indication: CHRONIC OBSTRUCTIVE PULMONARY DISEASE
     Dosage: 80/4.5 MCG, UNKNOWN
     Route: 055
  2. LISINOPRIL [Suspect]
     Indication: BLOOD PRESSURE
     Route: 048
  3. BRILINTA [Suspect]
     Route: 048
  4. DILTIAZER ER [Concomitant]
     Indication: ATRIAL FIBRILLATION
     Route: 048
     Dates: start: 20120602
  5. EFFIENT [Concomitant]
     Indication: CORONARY ARTERY DISEASE
     Route: 048
     Dates: start: 20120801
  6. EFFIENT [Concomitant]
     Indication: STENT PLACEMENT
     Route: 048
     Dates: start: 20120801
  7. LASIX [Concomitant]
     Indication: OEDEMA
     Route: 065
     Dates: start: 20120807
  8. PRAVASTATIN [Concomitant]
     Indication: BLOOD CHOLESTEROL
     Route: 048
     Dates: start: 201206
  9. PROZAC [Concomitant]
     Indication: DEPRESSION
     Route: 048

REACTIONS (3)
  - Tachycardia [Unknown]
  - Feeling jittery [Recovered/Resolved]
  - Nervousness [Recovered/Resolved]
